FAERS Safety Report 7788373-3 (Version None)
Quarter: 2011Q3

REPORT INFORMATION
  Report Type: 
  Country: None (occurrence: None)
  Receive Date: 20110930
  Receipt Date: 20110923
  Transmission Date: 20111222
  Serious: Yes (Other)
  Sender: FDA-Public Use
  Company Number: SE-AMGEN-SWESP2011037639

PATIENT
  Age: 75 Year
  Sex: Female
  Weight: 67 kg

DRUGS (6)
  1. LEVOTHYROXINE SODIUM [Concomitant]
     Indication: HYPOTHYROIDISM
  2. POTASSIUM CHLORIDE [Concomitant]
  3. BISOPROLOL FUMARATE [Concomitant]
     Indication: PALPITATIONS
  4. PROLIA [Suspect]
     Indication: OSTEOPOROSIS
     Dosage: UNK
     Route: 058
     Dates: start: 20110524
  5. MODURETIC 5-50 [Concomitant]
     Indication: PALPITATIONS
  6. KALCIPOS-D [Concomitant]
     Indication: OSTEOPOROSIS
     Dosage: 1 UNK, BID
     Route: 048

REACTIONS (5)
  - GLOSSODYNIA [None]
  - MUCOUS MEMBRANE DISORDER [None]
  - IRRITABLE BOWEL SYNDROME [None]
  - MALAISE [None]
  - EYE DISCHARGE [None]
